FAERS Safety Report 5259152-6 (Version None)
Quarter: 2007Q1

REPORT INFORMATION
  Report Type: 
  Country: None (occurrence: None)
  Receive Date: 20070308
  Receipt Date: 20070222
  Transmission Date: 20070707
  Serious: Yes (Hospitalization)
  Sender: FDA-Public Use
  Company Number: ZA-ELI_LILLY_AND_COMPANY-ZA200702005089

PATIENT
  Sex: Female

DRUGS (1)
  1. CYMBALTA [Suspect]
     Route: 048

REACTIONS (2)
  - CONSTIPATION [None]
  - HAEMORRHOIDS [None]
